FAERS Safety Report 8475946-8 (Version None)
Quarter: 2012Q2

REPORT INFORMATION
  Report Type: 
  Country: None (occurrence: None)
  Receive Date: 20120628
  Receipt Date: 20120620
  Transmission Date: 20120825
  Serious: Yes (Death)
  Sender: FDA-Public Use
  Company Number: US-BRISTOL-MYERS SQUIBB COMPANY-16322927

PATIENT
  Age: 81 Year
  Sex: Female

DRUGS (3)
  1. MEGACE [Concomitant]
     Route: 048
     Dates: start: 20110909
  2. SPRYCEL [Suspect]
     Indication: LYMPHOCYTIC LEUKAEMIA
     Dosage: SPRYCEL TABS 04APR2011
     Route: 048
     Dates: start: 20110214, end: 20111201
  3. METOPROLOL TARTRATE [Concomitant]

REACTIONS (1)
  - ACUTE RESPIRATORY FAILURE [None]
